FAERS Safety Report 5912076-0 (Version None)
Quarter: 2008Q4

REPORT INFORMATION
  Report Type: 
  Country: None (occurrence: None)
  Receive Date: 20081006
  Receipt Date: 20081006
  Transmission Date: 20090506
  Serious: Yes (Hospitalization)
  Sender: FDA-Public Use
  Company Number: None

PATIENT
  Sex: Female
  Weight: 79 kg

DRUGS (6)
  1. CIPROFLOXACIN HCL [Suspect]
     Indication: SKIN INFECTION
     Dosage: 750 MG TWICE DAILY PO
     Route: 048
  2. LISINOPRIL [Concomitant]
  3. OXYCODONE HCL [Concomitant]
  4. ZOLPIDEM [Concomitant]
  5. PRAMIPEXOLE DIHYDROCHLORIDE [Concomitant]
  6. PROMETHAZINE [Concomitant]

REACTIONS (6)
  - ASTHENIA [None]
  - BLOOD CREATININE INCREASED [None]
  - BLOOD UREA INCREASED [None]
  - DYSURIA [None]
  - NAUSEA [None]
  - VOMITING [None]
